FAERS Safety Report 9391166 (Version 3)
Quarter: 2013Q4

REPORT INFORMATION
  Report Type: Spontaneous
  Country: ES (occurrence: ES)
  Receive Date: 20130709
  Receipt Date: 20131001
  Transmission Date: 20140711
  Serious: Yes (Other)
  Sender: FDA-Public Use
  Company Number: ES-JNJFOC-20130700588

PATIENT
  Age: 34 Year
  Sex: Male

DRUGS (4)
  1. INFLIXIMAB, RECOMBINANT [Suspect]
     Indication: LARGE INTESTINAL STENOSIS
     Route: 050
  2. INFLIXIMAB, RECOMBINANT [Suspect]
     Indication: LARGE INTESTINAL STENOSIS
     Dosage: INTRAMUCOSAL IN THE COLON
     Route: 050
  3. INFLIXIMAB, RECOMBINANT [Suspect]
     Indication: CROHN^S DISEASE
     Route: 050
  4. INFLIXIMAB, RECOMBINANT [Suspect]
     Indication: CROHN^S DISEASE
     Dosage: INTRAMUCOSAL IN THE COLON
     Route: 050

REACTIONS (3)
  - Ileal stenosis [Unknown]
  - Drug ineffective [Unknown]
  - Off label use [Unknown]
